FAERS Safety Report 16633842 (Version 1)
Quarter: 2019Q3

REPORT INFORMATION
  Report Type: Spontaneous
  Country: US (occurrence: US)
  Receive Date: 20190725
  Receipt Date: 20190725
  Transmission Date: 20191004
  Serious: Yes (Other)
  Sender: FDA-Public Use
  Company Number: US-009507513-1907USA012106

PATIENT
  Age: 29 Year
  Sex: Female

DRUGS (1)
  1. NEXPLANON [Suspect]
     Active Substance: ETONOGESTREL
     Indication: CONTRACEPTION
     Dosage: ONE ROD EVERY THREE YEARS, IN ARM
     Route: 059
     Dates: start: 20160919

REACTIONS (5)
  - Abortion induced [Unknown]
  - Unintended pregnancy [Recovered/Resolved]
  - Emotional distress [Not Recovered/Not Resolved]
  - Pregnancy with implant contraceptive [Recovered/Resolved]
  - Amenorrhoea [Recovered/Resolved]

NARRATIVE: CASE EVENT DATE: 20190703
